FAERS Safety Report 4985620-8 (Version None)
Quarter: 2006Q2

REPORT INFORMATION
  Report Type: 
  Country: None (occurrence: None)
  Receive Date: 20060428
  Receipt Date: 20060418
  Transmission Date: 20061013
  Serious: Yes (Other)
  Sender: FDA-Public Use
  Company Number: 2006UW06845

PATIENT
  Age: 35 Year
  Sex: Female

DRUGS (9)
  1. SEROQUEL [Suspect]
     Indication: CONVULSION
     Route: 048
  2. WELLBUTRIN [Concomitant]
  3. LEVOXYL [Concomitant]
  4. ZELNORM [Concomitant]
  5. TRAZODONE HCL [Concomitant]
  6. ULTRAM [Concomitant]
  7. DICYCLOMINE [Concomitant]
  8. HYOSCYAMINE [Concomitant]
  9. ATIVAN [Concomitant]

REACTIONS (2)
  - HYPOTHALAMO-PITUITARY DISORDERS [None]
  - TACHYCARDIA [None]
